FAERS Safety Report 7913346-7 (Version None)
Quarter: 2011Q4

REPORT INFORMATION
  Report Type: 
  Country: None (occurrence: None)
  Receive Date: 20111114
  Receipt Date: 20111109
  Transmission Date: 20120403
  Serious: Yes (Other)
  Sender: FDA-Public Use
  Company Number: US-GILEAD-2011-0035614

PATIENT
  Age: 35 Year
  Sex: Female

DRUGS (2)
  1. CETIRIZINE HCL [Concomitant]
     Dates: start: 20100812, end: 20100816
  2. TENOFOVIR DISOPROXIL FUMARATE [Suspect]
     Indication: HIV INFECTION
     Dates: start: 20100325, end: 20100909

REACTIONS (1)
  - ABORTION SPONTANEOUS [None]
